FAERS Safety Report 9347012 (Version 1)
Quarter: 2013Q2

REPORT INFORMATION
  Report Type: Spontaneous
  Country: US (occurrence: US)
  Receive Date: 20130613
  Receipt Date: 20130613
  Transmission Date: 20140414
  Serious: Yes (Hospitalization)
  Sender: FDA-Public Use
  Company Number: US-GLAXOSMITHKLINE-A0797792A

PATIENT
  Age: 73 Year
  Sex: Female
  Weight: 107.3 kg

DRUGS (1)
  1. AVANDIA [Suspect]
     Indication: DIABETES MELLITUS
     Route: 048
     Dates: start: 20010419, end: 20060130

REACTIONS (3)
  - Cerebrovascular accident [Unknown]
  - Cardiac failure congestive [Unknown]
  - Transient ischaemic attack [Unknown]
